FAERS Safety Report 7532039-1 (Version None)
Quarter: 2011Q2

REPORT INFORMATION
  Report Type: 
  Country: None (occurrence: None)
  Receive Date: 20110608
  Receipt Date: 20110526
  Transmission Date: 20111010
  Serious: Yes (Life-Threatening)
  Sender: FDA-Public Use
  Company Number: IT-CELGENEUS-083-21880-11043678

PATIENT
  Sex: Female
  Weight: 62 kg

DRUGS (6)
  1. OMEPRAZOLE [Concomitant]
     Dosage: 20 MILLIGRAM
     Route: 048
  2. BACTRIM [Concomitant]
     Dosage: 1 TABLET 2X/DAY
     Route: 048
  3. ALLOPURINOL [Concomitant]
     Dosage: 85.7143 MILLIGRAM
     Route: 048
  4. ASPIRIN [Concomitant]
     Dosage: 100 MILLIGRAM
     Route: 048
     Dates: end: 20110406
  5. REVLIMID [Suspect]
     Indication: CHRONIC LYMPHOCYTIC LEUKAEMIA
     Dosage: 2.5 MILLIGRAM
     Route: 048
     Dates: start: 20100701, end: 20110201
  6. REVLIMID [Suspect]
     Dosage: 2.5 MILLIGRAM
     Route: 048
     Dates: end: 20110406

REACTIONS (1)
  - BREAST CANCER RECURRENT [None]
